FAERS Safety Report 5622278-9 (Version None)
Quarter: 2008Q1

REPORT INFORMATION
  Report Type: 
  Country: None (occurrence: None)
  Receive Date: 20080206
  Receipt Date: 20080124
  Transmission Date: 20080703
  Serious: Yes (Death)
  Sender: FDA-Public Use
  Company Number: L08-USA-00315-28

PATIENT
  Age: 52 Year
  Sex: Male

DRUGS (5)
  1. CITALOPRAM HYDROBROMIDE [Suspect]
  2. QUETIAPINE FUMARATE [Suspect]
  3. RISPERIDONE [Suspect]
  4. BENZODIAZEPINES [Suspect]
  5. DICLOFENAC SODIUM [Suspect]

REACTIONS (1)
  - DRUG TOXICITY [None]
